FAERS Safety Report 5244867-6 (Version None)
Quarter: 2007Q1

REPORT INFORMATION
  Report Type: 
  Country: None (occurrence: None)
  Receive Date: 20070221
  Receipt Date: 20070221
  Transmission Date: 20070707
  Serious: Yes (Other)
  Sender: FDA-Public Use
  Company Number: None

PATIENT
  Sex: Male
  Weight: 79.32 kg

DRUGS (26)
  1. ROSUVASTATIN [Suspect]
     Indication: DYSLIPIDAEMIA
     Dosage: 20MG QD PO
     Route: 048
     Dates: start: 20060922, end: 20061206
  2. ASPIRIN [Concomitant]
  3. ATORVASTATIN CALCIUM [Concomitant]
  4. BANDAGE [Concomitant]
  5. CARVEDILOL [Concomitant]
  6. CEPHALEXIN [Concomitant]
  7. CLOPIDOGREL BISULFATE [Concomitant]
  8. CLOTRIMAZOLE [Concomitant]
  9. DEXAMETHASONE [Concomitant]
  10. DICLOFENAC NA [Concomitant]
  11. FAMOTIDINE [Concomitant]
  12. FOLIC ACID [Concomitant]
  13. GABAPENTIN [Concomitant]
  14. GAUZE PAD [Concomitant]
  15. ACETAMINOPHEN AND HYDROCODONE BITARTRATE [Concomitant]
  16. LISINOPRIL [Concomitant]
  17. MORPHINE SO4 SA [Concomitant]
  18. NITROGLYCERIN [Concomitant]
  19. OMEPRAZOLE [Concomitant]
  20. OXYCODONE/ACETAMINOPHEN [Concomitant]
  21. PAD,ABDOMINAL [Concomitant]
  22. SILVER SULFADIAZINE [Concomitant]
  23. TERAZOSIN HCL [Concomitant]
  24. COUMADIN [Concomitant]
  25. VITAMIN E [Concomitant]
  26. COENZYME Q10 [Concomitant]

REACTIONS (1)
  - HEADACHE [None]
